FAERS Safety Report 6338524-2 (Version None)
Quarter: 2009Q3

REPORT INFORMATION
  Report Type: 
  Country: None (occurrence: None)
  Receive Date: 20090901
  Receipt Date: 20090819
  Transmission Date: 20100115
  Serious: Yes (Hospitalization)
  Sender: FDA-Public Use
  Company Number: 8044390

PATIENT
  Age: 82 Year
  Sex: Female

DRUGS (18)
  1. KEPPRA [Suspect]
     Dosage: 2 DR 1/D; PO
     Route: 048
     Dates: start: 20090127, end: 20090210
  2. INIPOMP [Suspect]
     Dosage: 20 MG /D, PO
     Route: 048
     Dates: start: 20090123, end: 20090205
  3. FLUDEX [Suspect]
     Dosage: 1.5 MG /D; PO
     Route: 048
     Dates: start: 20090126, end: 20090205
  4. DIAMICRON [Suspect]
     Dosage: 30 MG /D, PO
     Route: 048
     Dates: start: 20090127, end: 20090205
  5. GLUCOPHAGE [Suspect]
     Dosage: 2 DF 1/D; PO
     Route: 048
     Dates: start: 20090203
  6. NICARDIPINE HCL [Suspect]
     Dosage: 50 MG 2/D; PO
     Route: 048
     Dates: start: 20090127
  7. AUGMENTIN [Suspect]
     Dosage: PO
     Route: 048
     Dates: start: 20090123, end: 20090202
  8. INSULTARD [Concomitant]
  9. DIASTABOL [Concomitant]
  10. LEVOTHYROXINE SODIUM [Concomitant]
  11. SINTROM [Concomitant]
  12. ALLOPURINOL [Concomitant]
  13. LESCOL [Concomitant]
  14. COVERSYL [Concomitant]
  15. URBANYL [Concomitant]
  16. CO APROVEL [Concomitant]
  17. HYPERIUM [Concomitant]
  18. ZANIDIP [Concomitant]

REACTIONS (1)
  - THROMBOCYTOPENIA [None]
